FAERS Safety Report 4702908-6 (Version None)
Quarter: 2005Q2

REPORT INFORMATION
  Report Type: 
  Country: None (occurrence: None)
  Receive Date: 20050629
  Receipt Date: 20050614
  Transmission Date: 20051028
  Serious: Yes (Other)
  Sender: FDA-Public Use
  Company Number: JP-JNJFOC-20050306078

PATIENT
  Sex: Female

DRUGS (6)
  1. ITRACONAZOLE [Suspect]
     Route: 049
  2. MEROPENEM [Concomitant]
     Indication: PNEUMONIA
     Route: 042
     Dates: start: 20050120, end: 20050204
  3. LEVOFLOXACIN [Concomitant]
     Indication: PNEUMONIA
     Route: 049
     Dates: start: 20050204, end: 20050205
  4. PRECIPITATED CALCIUM CARBONATE [Concomitant]
     Route: 049
  5. OXATOMIDE [Concomitant]
     Route: 049
  6. CAFFEINE [Concomitant]
     Route: 049

REACTIONS (1)
  - PANCYTOPENIA [None]
